FAERS Safety Report 9766356 (Version 1)
Quarter: 2013Q4

REPORT INFORMATION
  Report Type: Spontaneous
  Country: TR (occurrence: TR)
  Receive Date: 20131217
  Receipt Date: 20131217
  Transmission Date: 20140711
  Serious: Yes (Death, Life-Threatening, Hospitalization, Other)
  Sender: FDA-Public Use
  Company Number: TR-ROXANE LABORATORIES, INC.-2013-RO-01952RO

PATIENT
  Age: 39 Year
  Sex: Female

DRUGS (5)
  1. LITHIUM CARBONATE [Suspect]
     Indication: BIPOLAR DISORDER
  2. LITHIUM CARBONATE [Suspect]
  3. OLANZAPINE [Suspect]
     Indication: BIPOLAR DISORDER
  4. VORICONAZOLE [Suspect]
     Indication: BRAIN ABSCESS
  5. METRONIDASOLE [Suspect]
     Indication: BRAIN ABSCESS

REACTIONS (8)
  - Cardiac arrest [Fatal]
  - Cardiotoxicity [Unknown]
  - Neurotoxicity [Unknown]
  - Antipsychotic drug level below therapeutic [Unknown]
  - Anaemia [Unknown]
  - Hepatic enzyme increased [Unknown]
  - Dehydration [Unknown]
  - Prerenal failure [Unknown]
